FAERS Safety Report 10284194 (Version 1)
Quarter: 2014Q3

REPORT INFORMATION
  Report Type: Spontaneous
  Country: US (occurrence: US)
  Receive Date: 20140708
  Receipt Date: 20140708
  Transmission Date: 20150326
  Serious: No
  Sender: FDA-Public Use
  Company Number: US-PFIZER INC-2014185268

PATIENT
  Sex: Female

DRUGS (3)
  1. CODEINE [Suspect]
     Active Substance: CODEINE
  2. CELEBREX [Suspect]
     Active Substance: CELECOXIB
     Indication: ARTHRITIS
  3. METHOTREXATE SODIUM. [Suspect]
     Active Substance: METHOTREXATE SODIUM

REACTIONS (1)
  - Drug hypersensitivity [Unknown]
